FAERS Safety Report 14574517 (Version 3)
Quarter: 2021Q3

REPORT INFORMATION
  Report Type: Report from Study
  Country: US (occurrence: US)
  Receive Date: 20180226
  Receipt Date: 20210923
  Transmission Date: 20211014
  Serious: Yes (Life-Threatening, Other)
  Sender: FDA-Public Use
  Company Number: US-AMGEN-USACT2018026125

PATIENT
  Age: 70 Year
  Sex: Female

DRUGS (2)
  1. TGR 1202 [Suspect]
     Active Substance: UMBRALISIB
     Indication: DIFFUSE LARGE B-CELL LYMPHOMA
     Dosage: 800 MILLIGRAM, PER CHEMO REGIM
     Route: 048
     Dates: start: 20171108
  2. CARFILZOMIB [Suspect]
     Active Substance: CARFILZOMIB
     Indication: DIFFUSE LARGE B-CELL LYMPHOMA
     Dosage: 20/27 MG/M2, PER CHEMO REGIM
     Route: 042
     Dates: start: 20171108

REACTIONS (1)
  - Neutropenia [Unknown]

NARRATIVE: CASE EVENT DATE: 20171208
